FAERS Safety Report 9558256 (Version 2)
Quarter: 2014Q2

REPORT INFORMATION
  Report Type: Spontaneous
  Country: FR (occurrence: FR)
  Receive Date: 20130926
  Receipt Date: 20140527
  Transmission Date: 20141212
  Serious: Yes (Death, Hospitalization, Other)
  Sender: FDA-Public Use
  Company Number: FR-JNJFOC-20130914388

PATIENT
  Sex: Female

DRUGS (16)
  1. LEVACT [Suspect]
     Indication: B-CELL LYMPHOMA
     Dosage: EVERY 3 WEEKS AND CONTINUED FOR 8 MONTHS
     Route: 041
     Dates: start: 201109, end: 201205
  2. DOXORUBICIN [Suspect]
     Indication: B-CELL LYMPHOMA
     Route: 042
     Dates: start: 2007, end: 2008
  3. VINCRISTINE [Suspect]
     Indication: B-CELL LYMPHOMA
     Dosage: REGIMEN 1
     Route: 051
     Dates: start: 2007, end: 2008
  4. PREDNISONE [Suspect]
     Indication: B-CELL LYMPHOMA
     Dosage: REGIMEN 1
     Route: 065
     Dates: start: 2007, end: 2008
  5. INTERFERON ALFA [Suspect]
     Indication: B-CELL LYMPHOMA
     Dosage: REGIMEN 1
     Route: 058
     Dates: start: 2007
  6. MABTHERA [Suspect]
     Indication: B-CELL LYMPHOMA
     Dosage: REGIMEN 1
     Route: 051
     Dates: start: 2009, end: 201205
  7. ZEVALIN [Suspect]
     Indication: B-CELL LYMPHOMA
     Dosage: REGIMEN 1, WITH MAINTENANCE THERAPY WITH RITUXIMAB EVERY 3 MONTHS UNTIL DEC2010
     Route: 042
     Dates: start: 200911, end: 200911
  8. ENDOXAN [Suspect]
     Indication: B-CELL LYMPHOMA
     Route: 042
     Dates: start: 2007, end: 2008
  9. MOVICOL [Concomitant]
     Route: 065
  10. LEDERFOLINE [Concomitant]
     Route: 065
  11. LYRICA [Concomitant]
     Route: 065
  12. RASILEZ [Concomitant]
     Route: 065
  13. BACTRIM [Concomitant]
     Route: 065
  14. PANTOPRAZOLE [Concomitant]
     Route: 065
  15. DOMPERIDONE [Concomitant]
     Route: 065
  16. TRAMADOL [Concomitant]
     Route: 065

REACTIONS (1)
  - Myelodysplastic syndrome [Fatal]
